FAERS Safety Report 14934227 (Version 1)
Quarter: 2018Q2

REPORT INFORMATION
  Report Type: Spontaneous
  Country: US (occurrence: US)
  Receive Date: 20180524
  Receipt Date: 20180524
  Transmission Date: 20180711
  Serious: Yes (Hospitalization)
  Sender: FDA-Public Use
  Company Number: US-PFIZER INC-2018208312

PATIENT
  Age: 60 Year
  Sex: Male
  Weight: 68 kg

DRUGS (2)
  1. FIBERCON [Suspect]
     Active Substance: CALCIUM POLYCARBOPHIL
     Indication: RECTAL HAEMORRHAGE
     Dosage: ONE OR TWO TABLETS DAILY
     Route: 048
     Dates: end: 201805
  2. ATORVASTATIN [Concomitant]
     Active Substance: ATORVASTATIN
     Indication: CARDIAC DISORDER

REACTIONS (6)
  - Memory impairment [Unknown]
  - Product use in unapproved indication [Unknown]
  - Blood count abnormal [Unknown]
  - Rectal haemorrhage [Recovered/Resolved]
  - Condition aggravated [Recovered/Resolved]
  - Haemoglobin decreased [Unknown]
